FAERS Safety Report 8343557-0 (Version None)
Quarter: 2012Q2

REPORT INFORMATION
  Report Type: 
  Country: None (occurrence: None)
  Receive Date: 20120508
  Receipt Date: 20120501
  Transmission Date: 20120825
  Serious: Yes (Other)
  Sender: FDA-Public Use
  Company Number: US-PFIZER INC-2012096949

PATIENT
  Sex: Male
  Weight: 113.38 kg

DRUGS (5)
  1. LOTEPREDNOL [Concomitant]
     Dosage: UNK
  2. XALATAN [Suspect]
     Indication: GLAUCOMA
     Dosage: UNK
     Route: 047
  3. ALPHAGAN [Concomitant]
     Dosage: UNK
  4. DORZOLAMIDE [Concomitant]
     Dosage: UNK
  5. LATANOPROST [Suspect]
     Indication: GLAUCOMA
     Dosage: UNK
     Route: 047

REACTIONS (2)
  - DIABETES MELLITUS [None]
  - INCORRECT DOSE ADMINISTERED [None]
